FAERS Safety Report 9314951 (Version 2)
Quarter: 2013Q2

REPORT INFORMATION
  Report Type: Spontaneous
  Country: JP (occurrence: JP)
  Receive Date: 20130529
  Receipt Date: 20130610
  Transmission Date: 20140414
  Serious: Yes (Life-Threatening, Hospitalization)
  Sender: FDA-Public Use
  Company Number: JP-JNJFOC-20130514325

PATIENT
  Age: 94 Year
  Sex: Male
  Weight: 49 kg

DRUGS (9)
  1. XARELTO [Suspect]
     Indication: CEREBROVASCULAR ACCIDENT PROPHYLAXIS
     Route: 048
     Dates: start: 20130513, end: 20130516
  2. XARELTO [Suspect]
     Indication: CEREBRAL INFARCTION
     Route: 048
     Dates: start: 20130513, end: 20130516
  3. XARELTO [Suspect]
     Indication: ATRIAL FIBRILLATION
     Route: 048
     Dates: start: 20130513, end: 20130516
  4. GRTPA [Suspect]
     Indication: THROMBOLYSIS
     Route: 042
     Dates: start: 20130503, end: 20130503
  5. RADICUT [Suspect]
     Indication: PRODUCT USED FOR UNKNOWN INDICATION
     Route: 042
     Dates: start: 20130503, end: 20130513
  6. DIART [Suspect]
     Indication: PRODUCT USED FOR UNKNOWN INDICATION
     Route: 048
     Dates: start: 20130507
  7. SPIRONOLACTONE [Suspect]
     Indication: PRODUCT USED FOR UNKNOWN INDICATION
     Route: 048
     Dates: start: 20130507
  8. RABEPRAZOLE SODIUM [Suspect]
     Indication: PRODUCT USED FOR UNKNOWN INDICATION
     Route: 048
     Dates: start: 20130510, end: 20130515
  9. DIGOSIN [Suspect]
     Indication: PRODUCT USED FOR UNKNOWN INDICATION
     Route: 042
     Dates: start: 20130514, end: 20130524

REACTIONS (1)
  - Deep vein thrombosis [Unknown]
